FAERS Safety Report 6724753-2 (Version None)
Quarter: 2010Q2

REPORT INFORMATION
  Report Type: 
  Country: None (occurrence: None)
  Receive Date: 20100513
  Receipt Date: 20100503
  Transmission Date: 20101027
  Serious: Yes (Other)
  Sender: FDA-Public Use
  Company Number: FR-AMGEN-QUU410615

PATIENT
  Sex: Male

DRUGS (3)
  1. ENBREL [Suspect]
     Indication: ANKYLOSING SPONDYLITIS
     Dosage: UNKNOWN
     Route: 058
     Dates: start: 20100301, end: 20100412
  2. METHOTREXATE [Interacting]
     Dosage: 25 MG THEN 20 MG TOTAL WEEKLY
     Route: 030
     Dates: start: 20100501
  3. METHOTREXATE [Interacting]
     Dosage: 20 MG TOTAL WEEKLY
     Route: 030
     Dates: end: 20100415

REACTIONS (4)
  - CONDITION AGGRAVATED [None]
  - CROHN'S DISEASE [None]
  - DRUG INTERACTION [None]
  - HEPATITIS [None]
